FAERS Safety Report 6071069-6 (Version None)
Quarter: 2009Q1

REPORT INFORMATION
  Report Type: 
  Country: None (occurrence: None)
  Receive Date: 20090209
  Receipt Date: 20080820
  Transmission Date: 20090719
  Serious: No
  Sender: FDA-Public Use
  Company Number: A0742697A

PATIENT
  Sex: Female

DRUGS (1)
  1. PAXIL CR [Suspect]
     Indication: DRUG USE FOR UNKNOWN INDICATION
     Dosage: 12.5MG UNKNOWN
     Route: 048
     Dates: start: 20060101

REACTIONS (3)
  - ADVERSE EVENT [None]
  - MALAISE [None]
  - THERAPEUTIC RESPONSE DECREASED [None]
